FAERS Safety Report 16261315 (Version 2)
Quarter: 2019Q2

REPORT INFORMATION
  Report Type: Spontaneous
  Country: US (occurrence: US)
  Receive Date: 20190501
  Receipt Date: 20190607
  Transmission Date: 20190711
  Serious: Yes (Death)
  Sender: FDA-Public Use
  Company Number: US-CELGENEUS-USA-20190410127

PATIENT
  Age: 60 Year
  Sex: Female

DRUGS (5)
  1. ABRAXANE [Suspect]
     Active Substance: PACLITAXEL
     Dosage: 100 MILLIGRAM/SQ. METER
     Route: 039
     Dates: start: 20181204, end: 20190212
  2. DEXAMETHASONE. [Concomitant]
     Active Substance: DEXAMETHASONE
     Indication: ANTIDIARRHOEAL SUPPORTIVE CARE
     Dosage: 10 MILLIGRAM
     Route: 041
     Dates: start: 20181204, end: 20190212
  3. ONDANSETRON [Concomitant]
     Active Substance: ONDANSETRON
     Indication: ANTIEMETIC SUPPORTIVE CARE
     Dosage: 16 MILLIGRAM
     Route: 041
     Dates: start: 20181204, end: 20190212
  4. ABRAXANE [Suspect]
     Active Substance: PACLITAXEL
     Indication: PRODUCT USED FOR UNKNOWN INDICATION
     Dosage: 200 MILLIGRAM
     Route: 039
     Dates: start: 20190111
  5. GEMCITABINE [Concomitant]
     Active Substance: GEMCITABINE\GEMCITABINE HYDROCHLORIDE
     Indication: PANCREATIC CARCINOMA
     Dosage: 1000 MILLIGRAM/SQ. METER
     Route: 041
     Dates: start: 20181204, end: 20190212

REACTIONS (1)
  - Pancreatic carcinoma metastatic [Fatal]

NARRATIVE: CASE EVENT DATE: 20190406
